FAERS Safety Report 10520617 (Version 1)
Quarter: 2014Q4

REPORT INFORMATION
  Report Type: Report from Study
  Country: US (occurrence: US)
  Receive Date: 20141015
  Receipt Date: 20141015
  Transmission Date: 20150528
  Serious: Yes (Other)
  Sender: FDA-Public Use
  Company Number: US-ALEXION-A200800800

PATIENT

DRUGS (1)
  1. SOLIRIS [Suspect]
     Active Substance: ECULIZUMAB
     Indication: PAROXYSMAL NOCTURNAL HAEMOGLOBINURIA

REACTIONS (16)
  - Quality of life decreased [Unknown]
  - Dysphagia [Unknown]
  - Dyspnoea [Unknown]
  - Back pain [Unknown]
  - Weight decreased [Unknown]
  - Dental implantation [Unknown]
  - Hypoacusis [Unknown]
  - Nasopharyngitis [Unknown]
  - Tooth fracture [Unknown]
  - Suicidal ideation [Unknown]
  - Fatigue [Unknown]
  - Blood lactate dehydrogenase increased [Unknown]
  - Depressed mood [Unknown]
  - Haemoglobin decreased [Unknown]
  - Allergy to animal [Unknown]
  - Haemolysis [Unknown]
